FAERS Safety Report 11919277 (Version 1)
Quarter: 2016Q1

REPORT INFORMATION
  Report Type: Spontaneous
  Country: US (occurrence: US)
  Receive Date: 20160115
  Receipt Date: 20160115
  Transmission Date: 20160526
  Serious: Yes (Hospitalization)
  Sender: FDA-Public Use
  Company Number: US-ACCORD-036999

PATIENT
  Age: 74 Year
  Sex: Male

DRUGS (7)
  1. DIPHENHYDRAMINE. [Concomitant]
     Active Substance: DIPHENHYDRAMINE
     Route: 042
  2. LORAZEPAM. [Concomitant]
     Active Substance: LORAZEPAM
     Route: 042
  3. METOCLOPRAMIDE. [Concomitant]
     Active Substance: METOCLOPRAMIDE
     Route: 042
  4. DEXAMETHASONE. [Concomitant]
     Active Substance: DEXAMETHASONE
     Route: 042
  5. WARFARIN [Interacting]
     Active Substance: WARFARIN
     Indication: ATRIAL FIBRILLATION
     Dosage: 5 MG EVERY OTHER DAY ALTERNATING WITH 7.5 MG EVERY OTHER DAY, REINTRODUCED
  6. ETOPOSIDE. [Suspect]
     Active Substance: ETOPOSIDE
     Indication: METASTASES TO THE MEDIASTINUM
     Dosage: 150 MG/M2, DAYS 1-3
     Route: 042
  7. CARBOPLATIN. [Interacting]
     Active Substance: CARBOPLATIN
     Indication: METASTASES TO THE MEDIASTINUM
     Dosage: 180 MG/M2, DAY 1
     Route: 042

REACTIONS (7)
  - Diarrhoea [Unknown]
  - Weight decreased [Unknown]
  - Drug interaction [Unknown]
  - Vomiting [Unknown]
  - Pyrexia [Unknown]
  - International normalised ratio increased [Recovered/Resolved]
  - Nausea [Unknown]

NARRATIVE: CASE EVENT DATE: 19960821
